FAERS Safety Report 12463844 (Version 1)
Quarter: 2016Q2

REPORT INFORMATION
  Report Type: Spontaneous
  Country: US (occurrence: None)
  Receive Date: 20160613
  Receipt Date: 20160613
  Transmission Date: 20160815
  Serious: Yes (Other)
  Sender: FDA-Public Use
  Company Number: None

PATIENT
  Age: 63 Year
  Sex: Female
  Weight: 81.65 kg

DRUGS (2)
  1. ALPHAGAN P [Suspect]
     Active Substance: BRIMONIDINE TARTRATE
     Indication: GLAUCOMA
     Route: 031
     Dates: start: 20160528, end: 20160528
  2. ALPHAGAN P [Suspect]
     Active Substance: BRIMONIDINE TARTRATE
     Indication: HYPERTENSION
     Route: 031
     Dates: start: 20160528, end: 20160528

REACTIONS (3)
  - Fall [None]
  - Hypotension [None]
  - Muscular weakness [None]

NARRATIVE: CASE EVENT DATE: 20160528
